FAERS Safety Report 21731787 (Version 1)
Quarter: 2022Q4

REPORT INFORMATION
  Report Type: Spontaneous
  Country: DE (occurrence: DE)
  Receive Date: 20221215
  Receipt Date: 20221215
  Transmission Date: 20230113
  Serious: Yes (Hospitalization)
  Sender: FDA-Public Use
  Company Number: DE-LUPIN PHARMACEUTICALS INC.-2022-14428

PATIENT
  Age: 67 Year
  Sex: Female

DRUGS (10)
  1. RISPERIDONE [Suspect]
     Active Substance: RISPERIDONE
     Indication: Schizoaffective disorder
     Dosage: UNK
     Route: 065
     Dates: start: 2009
  2. OLANZAPINE [Suspect]
     Active Substance: OLANZAPINE
     Indication: Schizoaffective disorder
     Dosage: UNK
     Route: 065
  3. AMISULPRIDE [Suspect]
     Active Substance: AMISULPRIDE
     Indication: Schizoaffective disorder
     Dosage: UNK
     Route: 065
     Dates: start: 2009
  4. ZIPRASIDONE [Suspect]
     Active Substance: ZIPRASIDONE
     Indication: Schizoaffective disorder
     Dosage: UNK
     Route: 065
  5. MIRTAZAPINE [Suspect]
     Active Substance: MIRTAZAPINE
     Indication: Schizoaffective disorder
     Dosage: UNK
     Route: 065
     Dates: start: 2009
  6. BENPERIDOL [Suspect]
     Active Substance: BENPERIDOL
     Indication: Schizoaffective disorder
     Dosage: UNK
     Route: 065
     Dates: start: 2009
  7. MELPERONE [Suspect]
     Active Substance: MELPERONE
     Indication: Schizoaffective disorder
     Dosage: UNK
     Route: 065
     Dates: start: 2009
  8. PALIPERIDONE [Suspect]
     Active Substance: PALIPERIDONE
     Indication: Schizoaffective disorder
     Dosage: UNK
     Route: 065
     Dates: start: 2009
  9. CLOZAPINE [Suspect]
     Active Substance: CLOZAPINE
     Indication: Schizoaffective disorder
     Dosage: UNK
     Route: 065
     Dates: start: 2009
  10. DOXEPIN [Suspect]
     Active Substance: DOXEPIN
     Indication: Schizoaffective disorder
     Dosage: UNK
     Route: 065
     Dates: start: 2009

REACTIONS (1)
  - Drug resistance [Unknown]
